FAERS Safety Report 6127936-8 (Version None)
Quarter: 2009Q1

REPORT INFORMATION
  Report Type: 
  Country: None (occurrence: None)
  Receive Date: 20090323
  Receipt Date: 20090313
  Transmission Date: 20090719
  Serious: Yes (Other)
  Sender: FDA-Public Use
  Company Number: US-ASTRAZENECA-2009AP02033

PATIENT
  Sex: Female

DRUGS (4)
  1. ZESTRIL [Suspect]
     Route: 065
  2. TOPROL-XL [Suspect]
     Route: 065
  3. PLAVIX [Suspect]
     Route: 065
  4. LIPITOR [Suspect]
     Route: 065

REACTIONS (2)
  - FACE OEDEMA [None]
  - OEDEMA PERIPHERAL [None]
